FAERS Safety Report 22130312 (Version 1)
Quarter: 2023Q1

REPORT INFORMATION
  Report Type: Spontaneous
  Country: US (occurrence: None)
  Receive Date: 20230315
  Receipt Date: 20230315
  Transmission Date: 20230418
  Serious: Yes (Hospitalization, Other)
  Sender: FDA-Public Use
  Company Number: None

PATIENT
  Age: 40 Year
  Sex: Female
  Weight: 74.84 kg

DRUGS (13)
  1. LACHESIS MUTUS [Suspect]
     Active Substance: LACHESIS MUTA VENOM
     Indication: Migraine
     Dosage: FREQUENCY : DAILY;?
     Route: 048
     Dates: start: 20220903, end: 202210
  2. MAGNESIUM [Suspect]
     Active Substance: MAGNESIUM
     Indication: Migraine
     Dosage: FREQUENCY : DAILY;?
     Route: 048
     Dates: start: 20221001, end: 20230121
  3. VITAMIN B2 [Suspect]
     Active Substance: RIBOFLAVIN
  4. TYLENOL [Suspect]
     Active Substance: ACETAMINOPHEN
  5. ACETAMINOPHEN [Suspect]
     Active Substance: ACETAMINOPHEN
  6. EXCEDRIN MIGRAINE [Suspect]
     Active Substance: ACETAMINOPHEN\ASPIRIN\CAFFEINE
  7. IBUPROFEN [Suspect]
     Active Substance: IBUPROFEN
  8. REGLAN [Suspect]
     Active Substance: METOCLOPRAMIDE HYDROCHLORIDE
  9. ASPIRIN [Suspect]
     Active Substance: ASPIRIN
  10. SUMATRIPTAN [Suspect]
     Active Substance: SUMATRIPTAN
  11. AMPICILLIN [Concomitant]
     Active Substance: AMPICILLIN
  12. BETAMETHASONE [Concomitant]
     Active Substance: BETAMETHASONE
  13. VITAMINS [Concomitant]
     Active Substance: VITAMINS

REACTIONS (5)
  - Premature rupture of membranes [None]
  - Maternal exposure during pregnancy [None]
  - Foetal exposure during pregnancy [None]
  - Caesarean section [None]
  - Premature labour [None]

NARRATIVE: CASE EVENT DATE: 20230305
